FAERS Safety Report 9692126 (Version 1)
Quarter: 2013Q4

REPORT INFORMATION
  Report Type: Spontaneous
  Country: US (occurrence: US)
  Receive Date: 20131118
  Receipt Date: 20131118
  Transmission Date: 20140711
  Serious: Yes (Hospitalization, Other)
  Sender: FDA-Public Use
  Company Number: US-BIOGENIDEC-2013BI108651

PATIENT
  Age: 56 Year
  Sex: Female

DRUGS (1)
  1. TECFIDERA [Suspect]
     Indication: MULTIPLE SCLEROSIS
     Route: 048
     Dates: start: 201307

REACTIONS (6)
  - Loss of consciousness [Recovered/Resolved]
  - Concussion [Unknown]
  - Fall [Recovered/Resolved]
  - Laceration [Unknown]
  - Hypotension [Unknown]
  - Viral infection [Unknown]
